FAERS Safety Report 17861000 (Version 1)
Quarter: 2020Q2

REPORT INFORMATION
  Report Type: Report from Study
  Country: CA (occurrence: CA)
  Receive Date: 20200604
  Receipt Date: 20200604
  Transmission Date: 20200714
  Serious: Yes (Death, Other)
  Sender: FDA-Public Use
  Company Number: PHHY2017CA185555

PATIENT
  Age: 69 Year
  Sex: Male
  Weight: 71.6 kg

DRUGS (7)
  1. REVOLADE [Suspect]
     Active Substance: ELTROMBOPAG
     Dosage: 75 MG, UNK
     Route: 065
  2. NOVORAPID [Concomitant]
     Active Substance: INSULIN ASPART
     Indication: PRODUCT USED FOR UNKNOWN INDICATION
     Route: 065
  3. REVOLADE [Suspect]
     Active Substance: ELTROMBOPAG
     Indication: IMMUNE THROMBOCYTOPENIA
     Dosage: 50 MG, UNK
     Route: 048
     Dates: start: 20161101, end: 20190127
  4. DANAZOL. [Concomitant]
     Active Substance: DANAZOL
     Indication: PRODUCT USED FOR UNKNOWN INDICATION
     Route: 065
  5. ELTROXIN [Concomitant]
     Active Substance: LEVOTHYROXINE
     Indication: PRODUCT USED FOR UNKNOWN INDICATION
     Dosage: UNK
     Route: 065
  6. RITUXIMAB. [Suspect]
     Active Substance: RITUXIMAB
     Indication: IMMUNE THROMBOCYTOPENIA
     Route: 065
  7. LIPITOR [Concomitant]
     Active Substance: ATORVASTATIN CALCIUM
     Indication: PRODUCT USED FOR UNKNOWN INDICATION
     Dosage: UNK
     Route: 065

REACTIONS (27)
  - Death [Fatal]
  - Coronary artery disease [Unknown]
  - Gastritis [Unknown]
  - Mean cell haemoglobin concentration decreased [Unknown]
  - Red cell distribution width increased [Unknown]
  - Chronic kidney disease [Not Recovered/Not Resolved]
  - Diabetic nephropathy [Unknown]
  - Peripheral vascular disorder [Recovering/Resolving]
  - Product use in unapproved indication [Unknown]
  - Injury [Unknown]
  - Malaise [Unknown]
  - Dyspnoea [Unknown]
  - Proteinuria [Unknown]
  - Obesity [Unknown]
  - Platelet count decreased [Unknown]
  - Chronic obstructive pulmonary disease [Recovering/Resolving]
  - General physical health deterioration [Not Recovered/Not Resolved]
  - Gastrooesophageal reflux disease [Unknown]
  - Atrial fibrillation [Unknown]
  - Hypothyroidism [Unknown]
  - Neutrophil count increased [Unknown]
  - Concomitant disease aggravated [Not Recovered/Not Resolved]
  - Hypercholesterolaemia [Unknown]
  - Contusion [Recovering/Resolving]
  - White blood cell count increased [Unknown]
  - Haemoglobin decreased [Unknown]
  - Reticulocyte count increased [Unknown]

NARRATIVE: CASE EVENT DATE: 2017
